FAERS Safety Report 8858284 (Version 1)
Quarter: 2012Q4

REPORT INFORMATION
  Report Type: 
  Country: US (occurrence: US)
  Receive Date: 20121024
  Receipt Date: 20121024
  Transmission Date: 20130627
  Serious: No
  Sender: FDA-Public Use
  Company Number: US-AMGEN-USASP2012000114

PATIENT
  Age: 73 Year
  Sex: Male

DRUGS (11)
  1. ENBREL [Suspect]
     Indication: PRODUCT USED FOR UNKNOWN INDICATION
     Dosage: 50 mg, qwk
  2. SPIRONOLACTON [Concomitant]
     Dosage: 50 mg, UNK
  3. RANITIDINE [Concomitant]
     Dosage: 75 mg, UNK
  4. RENAGEL                            /01459901/ [Concomitant]
     Dosage: 400 mg, UNK
  5. VITAMIN D /00107901/ [Concomitant]
  6. FUROSEMIDE [Concomitant]
     Dosage: 20 mg, UNK
  7. ZEMPLAR [Concomitant]
     Dosage: 2 UNK, UNK
  8. ALLOPURINOL [Concomitant]
     Dosage: 100 mg, UNK
  9. NIFEDIPINE [Concomitant]
     Dosage: 10 mg, UNK
  10. METOPROLOL [Concomitant]
     Dosage: 50 mg, UNK
  11. LOVASTATIN [Concomitant]
     Dosage: 20 mg, UNK

REACTIONS (1)
  - Injection site pain [Unknown]
